FAERS Safety Report 6924248-7 (Version None)
Quarter: 2010Q3

REPORT INFORMATION
  Report Type: 
  Country: None (occurrence: None)
  Receive Date: 20100811
  Receipt Date: 20100811
  Transmission Date: 20110219
  Serious: No
  Sender: FDA-Public Use
  Company Number: None

PATIENT
  Sex: Female

DRUGS (1)
  1. REBIF [Suspect]
     Dosage: 44 MCG/0.5ML SC
     Route: 058
     Dates: start: 20091125, end: 20100810

REACTIONS (3)
  - DEPRESSION [None]
  - FATIGUE [None]
  - THYROID DISORDER [None]
